FAERS Safety Report 25085610 (Version 1)
Quarter: 2025Q1

REPORT INFORMATION
  Report Type: Spontaneous
  Country: AU (occurrence: AU)
  Receive Date: 20250317
  Receipt Date: 20250317
  Transmission Date: 20250409
  Serious: Yes (Other)
  Sender: AMGEN
  Company Number: AU-AMGEN-AUSSP2025047874

PATIENT
  Age: 76 Year
  Sex: Female

DRUGS (2)
  1. PROLIA [Suspect]
     Active Substance: DENOSUMAB
     Indication: Product used for unknown indication
     Dosage: UNK, Q6MO
     Route: 065
  2. VITAMIN B12 [Concomitant]
     Active Substance: CYANOCOBALAMIN
     Indication: Product used for unknown indication
     Route: 065

REACTIONS (17)
  - Myocardial infarction [Unknown]
  - Arthralgia [Unknown]
  - Feeling of despair [Unknown]
  - Dysstasia [Unknown]
  - Back pain [Unknown]
  - COVID-19 [Unknown]
  - Influenza [Unknown]
  - Pruritus [Unknown]
  - Pain in extremity [Unknown]
  - Myalgia [Unknown]
  - Paraesthesia [Unknown]
  - Paraesthesia oral [Unknown]
  - Bone pain [Unknown]
  - Mouth ulceration [Unknown]
  - Groin pain [Unknown]
  - Pain in extremity [Unknown]
  - Hypersensitivity [Unknown]
